FAERS Safety Report 16409220 (Version 8)
Quarter: 2020Q2

REPORT INFORMATION
  Report Type: Report from Study
  Country: IT (occurrence: IT)
  Receive Date: 20190610
  Receipt Date: 20200518
  Transmission Date: 20200713
  Serious: Yes (Hospitalization)
  Sender: FDA-Public Use
  Company Number: IT-ROCHE-2332223

PATIENT
  Age: 48 Year
  Sex: Female
  Weight: 72 kg

DRUGS (21)
  1. TRIMETON [Concomitant]
     Active Substance: CHLORPHENIRAMINE MALEATE
     Dosage: ONCE BEFORE?INFUSION
     Route: 042
     Dates: start: 20190830, end: 20190830
  2. POTASSIUM [Concomitant]
     Active Substance: POTASSIUM
     Indication: BACK PAIN
     Route: 048
     Dates: start: 2018
  3. PARACETAMOLO [Concomitant]
     Active Substance: ACETAMINOPHEN
     Route: 048
     Dates: start: 20190830, end: 20190830
  4. FINDERM [Concomitant]
     Dosage: 2 OVUL, INTRAVAGINAL
     Route: 065
     Dates: start: 20190313
  5. SOLU-MEDROL [Concomitant]
     Active Substance: METHYLPREDNISOLONE SODIUM SUCCINATE
     Indication: PREMEDICATION
     Dosage: ONCE BEFORE INFUSION
     Route: 042
     Dates: start: 20190322, end: 20190322
  6. AMOXICILLINA [Concomitant]
     Active Substance: AMOXICILLIN
     Route: 048
     Dates: start: 20200219
  7. METHYLPREDNISOLONE. [Concomitant]
     Active Substance: METHYLPREDNISOLONE
     Dosage: ONCE BEFORE?INFUSION
     Route: 042
     Dates: start: 20190830, end: 20190830
  8. METHYLPREDNISOLONE. [Concomitant]
     Active Substance: METHYLPREDNISOLONE
     Dosage: ONCE BEFORE?INFUSION
     Route: 042
     Dates: start: 20200327, end: 20200327
  9. TRIMETON [Concomitant]
     Active Substance: CHLORPHENIRAMINE MALEATE
     Dosage: ONCE BEFORE?INFUSION
     Route: 042
     Dates: start: 20190322, end: 20190322
  10. OMEPRAZOLE. [Concomitant]
     Active Substance: OMEPRAZOLE
     Dosage: ONCE BEFORE?INFUSION
     Route: 042
     Dates: start: 20200327, end: 20200327
  11. CLOPIDOGREL [Concomitant]
     Active Substance: CLOPIDOGREL BISULFATE
  12. OCRELIZUMAB. [Suspect]
     Active Substance: OCRELIZUMAB
     Indication: PROGRESSIVE MULTIPLE SCLEROSIS
     Dosage: ON 22/MAR/2019 AT 13:24 , THE PATIENT RECEIVED MOST RECENT DOSE
     Route: 042
     Dates: start: 20190322
  13. MAGNESIUM [Concomitant]
     Active Substance: MAGNESIUM
     Indication: BACK PAIN
     Route: 048
     Dates: start: 2018
  14. ZANTAC [Concomitant]
     Active Substance: RANITIDINE HYDROCHLORIDE
     Route: 042
     Dates: start: 20190322, end: 20190322
  15. ZANTAC [Concomitant]
     Active Substance: RANITIDINE HYDROCHLORIDE
     Route: 042
     Dates: start: 20190830, end: 20190830
  16. VOLTADVANCE [Concomitant]
     Active Substance: DICLOFENAC SODIUM
     Indication: BACK PAIN
     Route: 048
     Dates: start: 2018
  17. PARACETAMOLO [Concomitant]
     Active Substance: ACETAMINOPHEN
     Indication: PREMEDICATION
     Route: 048
     Dates: start: 20190322, end: 20190322
  18. AMOXICILLINA [Concomitant]
     Active Substance: AMOXICILLIN
     Indication: URINARY TRACT INFECTION
     Route: 048
     Dates: start: 20190502, end: 20190505
  19. CIPROFLOXACINA [CIPROFLOXACIN] [Concomitant]
     Active Substance: CIPROFLOXACIN
     Indication: URINARY TRACT INFECTION
     Route: 048
     Dates: start: 20200227, end: 20200304
  20. TRIMETON [Concomitant]
     Active Substance: CHLORPHENIRAMINE MALEATE
     Dosage: ONCE BEFORE?INFUSION
     Route: 042
     Dates: start: 20200327, end: 20200327
  21. LIORESAL [Concomitant]
     Active Substance: BACLOFEN
     Route: 048
     Dates: start: 2018

REACTIONS (1)
  - Myocardial infarction [Recovered/Resolved]

NARRATIVE: CASE EVENT DATE: 20190601
